FAERS Safety Report 4469065-5 (Version None)
Quarter: 2004Q4

REPORT INFORMATION
  Report Type: 
  Country: None (occurrence: None)
  Receive Date: 20041001
  Receipt Date: 20040916
  Transmission Date: 20050328
  Serious: Yes (Life-Threatening)
  Sender: FDA-Public Use
  Company Number: 2004-0007516

PATIENT
  Age: 41 Year
  Sex: Male
  Weight: 58 kg

DRUGS (3)
  1. VIREAD (TNOFOVIR DISOPROXIL FUMURATE) (300 MG) [Suspect]
     Indication: HIV INFECTION
     Dosage: 300 MG, 1 IN 1 D, ORAL
     Route: 048
     Dates: start: 20030314
  2. COMBIVIR (ZIDOVUDINE W/ LAMIVUDINE) (1 DOSAGE FORMS) [Suspect]
     Indication: HIV INFECTION
     Dosage: 1 DOSAGE FORMS, 2 IN 1 D, ORAL
     Route: 048
     Dates: start: 20021113
  3. SUSTIVA (EFAVIRENZ) (1 DOSAGE FORM) [Suspect]
     Indication: HIV INFECTION
     Dosage: 1 DOSAGE FORMS, 1 IN 1 D, ORAL
     Route: 048
     Dates: start: 20030514

REACTIONS (1)
  - MYOCARDIAL INFARCTION [None]
